FAERS Safety Report 7960297-8 (Version None)
Quarter: 2011Q4

REPORT INFORMATION
  Report Type: 
  Country: None (occurrence: None)
  Receive Date: 20111206
  Receipt Date: 20111202
  Transmission Date: 20120403
  Serious: Yes (Death, Hospitalization)
  Sender: FDA-Public Use
  Company Number: PHHY2011US45111

PATIENT
  Sex: Male
  Weight: 34 kg

DRUGS (7)
  1. LASIX [Concomitant]
     Indication: CARDIAC FAILURE
     Dosage: 40 MG, BID
     Route: 048
  2. ALENDRONATE SODIUM [Concomitant]
     Indication: OSTEOPOROSIS
     Dosage: 70 MG, ONCE DAILY
  3. EXJADE [Suspect]
     Indication: IRON OVERLOAD
  4. EXJADE [Suspect]
     Indication: THALASSAEMIA SICKLE CELL
     Dosage: 625 MG, DAILY
     Route: 048
     Dates: start: 20061114, end: 20110506
  5. OXYCONTIN [Concomitant]
     Indication: PAIN
     Dosage: 20 MG, BID
  6. ALBUTEROL [Concomitant]
     Dosage: 2 DF, EVERY 6 HRS
  7. MAGNESIUM OXIDE [Concomitant]
     Indication: MAGNESIUM DEFICIENCY
     Dosage: 400 MG, TID

REACTIONS (1)
  - ACUTE HEPATIC FAILURE [None]
